FAERS Safety Report 4966398-0 (Version None)
Quarter: 2006Q2

REPORT INFORMATION
  Report Type: 
  Country: None (occurrence: None)
  Receive Date: 20060407
  Receipt Date: 20060327
  Transmission Date: 20061013
  Serious: Yes (Hospitalization)
  Sender: FDA-Public Use
  Company Number: FR-ROCHE-441837

PATIENT
  Age: 55 Year
  Sex: Male
  Weight: 70 kg

DRUGS (3)
  1. CAPECITABINE [Suspect]
     Dosage: DAYS 1-7, Q2W
     Route: 048
     Dates: start: 20060105
  2. AVASTIN [Suspect]
     Route: 042
     Dates: start: 20060105
  3. OXALIPLATIN [Suspect]
     Route: 042
     Dates: start: 20060105

REACTIONS (2)
  - DIARRHOEA [None]
  - HAEMORRHOIDS [None]
